FAERS Safety Report 19223600 (Version 1)
Quarter: 2021Q2

REPORT INFORMATION
  Report Type: Spontaneous
  Country: CN (occurrence: CN)
  Receive Date: 20210506
  Receipt Date: 20210506
  Transmission Date: 20210717
  Serious: Yes (Other)
  Sender: FDA-Public Use
  Company Number: CN-PFIZER INC-2021457228

PATIENT
  Age: 75 Year
  Sex: Male

DRUGS (2)
  1. MEDROL [Suspect]
     Active Substance: METHYLPREDNISOLONE
     Indication: ANTIINFLAMMATORY THERAPY
     Dosage: 2 DF, 1X/DAY
     Route: 048
  2. MEDROL [Suspect]
     Active Substance: METHYLPREDNISOLONE
     Indication: OSTEOARTHRITIS
     Dosage: 8 MG, 1X/DAY (REDUCED TO ONE AND A HALF TABLETS)
     Route: 048
     Dates: start: 20210416, end: 20210419

REACTIONS (2)
  - Haemorrhage [Recovering/Resolving]
  - Cushing^s syndrome [Recovering/Resolving]

NARRATIVE: CASE EVENT DATE: 20210419
